FAERS Safety Report 16729247 (Version 1)
Quarter: 2019Q4

REPORT INFORMATION
  Report Type: Spontaneous
  Country: US (occurrence: US)
  Receive Date: 20190821
  Receipt Date: 20190821
  Transmission Date: 20200122
  Serious: No
  Sender: FDA-Public Use
  Company Number: None

PATIENT
  Age: 51 Year
  Sex: Male
  Weight: 106.5 kg

DRUGS (2)
  1. ALTEPLASE. [Suspect]
     Active Substance: ALTEPLASE
     Indication: CEREBROVASCULAR ACCIDENT
     Dosage: ?          OTHER FREQUENCY:ONCE;?
     Route: 040
  2. ASPIRIN. [Concomitant]
     Active Substance: ASPIRIN
     Dates: start: 20190821

REACTIONS (2)
  - Infusion related reaction [None]
  - Seizure [None]

NARRATIVE: CASE EVENT DATE: 20190817
